FAERS Safety Report 6544258-1 (Version None)
Quarter: 2010Q1

REPORT INFORMATION
  Report Type: 
  Country: None (occurrence: None)
  Receive Date: 20100119
  Receipt Date: 20100119
  Transmission Date: 20100710
  Serious: Yes (Other)
  Sender: FDA-Public Use
  Company Number: None

PATIENT
  Age: 36 Year
  Sex: Female
  Weight: 70.3075 kg

DRUGS (2)
  1. TYLENOL PM 500 MG [Suspect]
     Indication: INSOMNIA
     Dosage: 2 CAPETS ONCE NIGHTLY
     Dates: start: 20091130, end: 20100103
  2. TYLENOL PM 500 MG [Suspect]
     Indication: PAIN
     Dosage: 2 CAPETS ONCE NIGHTLY
     Dates: start: 20091130, end: 20100103

REACTIONS (3)
  - MALAISE [None]
  - MIGRAINE [None]
  - PRODUCT QUALITY ISSUE [None]
